FAERS Safety Report 25377171 (Version 2)
Quarter: 2025Q3

REPORT INFORMATION
  Report Type: Spontaneous
  Country: BR (occurrence: BR)
  Receive Date: 20250530
  Receipt Date: 20250703
  Transmission Date: 20251021
  Serious: Yes (Other)
  Sender: NOVO NORDISK
  Company Number: BR-NOVOPROD-1431827

PATIENT
  Age: 626 Month
  Sex: Female

DRUGS (1)
  1. NOVORAPID [Suspect]
     Active Substance: INSULIN ASPART
     Indication: Blood glucose abnormal
     Dosage: 20 IU, QD(SHE MAKES UP TO 4 APPLICATIONS PER DAY)
     Dates: start: 20250504, end: 202505

REACTIONS (7)
  - Blood glucose increased [Recovered/Resolved]
  - Drug ineffective [Unknown]
  - Device breakage [Unknown]
  - Malaise [Unknown]
  - Injection site bruising [Unknown]
  - Product storage error [Not Recovered/Not Resolved]
  - Liquid product physical issue [Unknown]

NARRATIVE: CASE EVENT DATE: 20250501
